FAERS Safety Report 19653396 (Version 2)
Quarter: 2021Q3

REPORT INFORMATION
  Report Type: Spontaneous
  Country: IE (occurrence: IE)
  Receive Date: 20210804
  Receipt Date: 20210906
  Transmission Date: 20211014
  Serious: No
  Sender: FDA-Public Use
  Company Number: IE-JNJFOC-20210766312

PATIENT

DRUGS (3)
  1. DUROGESIC D?TRANS [Suspect]
     Active Substance: FENTANYL
     Indication: PRODUCT USED FOR UNKNOWN INDICATION
     Dosage: UNKNOWN
     Route: 062
  2. DUROGESIC D?TRANS [Suspect]
     Active Substance: FENTANYL
  3. DUROGESIC D?TRANS [Suspect]
     Active Substance: FENTANYL

REACTIONS (1)
  - Product adhesion issue [Unknown]
